FAERS Safety Report 7397167-2 (Version None)
Quarter: 2011Q2

REPORT INFORMATION
  Report Type: 
  Country: None (occurrence: None)
  Receive Date: 20110406
  Receipt Date: 20110331
  Transmission Date: 20111010
  Serious: Yes (Disabling)
  Sender: FDA-Public Use
  Company Number: B0710773A

PATIENT
  Sex: Female
  Weight: 22.3 kg

DRUGS (7)
  1. CARBOPLATIN [Suspect]
     Indication: STEM CELL TRANSPLANT
     Dosage: 400MGM2 PER DAY
     Route: 042
     Dates: start: 20081110, end: 20081113
  2. MYCOSYST [Concomitant]
     Dosage: 100MG PER DAY
     Route: 042
     Dates: start: 20081113, end: 20081201
  3. FIRSTCIN [Concomitant]
     Dosage: 2400MG PER DAY
     Route: 042
     Dates: start: 20081113, end: 20081201
  4. ALKERAN [Suspect]
     Indication: STEM CELL TRANSPLANT
     Dosage: 100MGM2 PER DAY
     Route: 042
     Dates: start: 20081112, end: 20081113
  5. DECADRON [Concomitant]
     Dosage: 4MG PER DAY
     Dates: start: 20081113, end: 20081114
  6. GASTER [Concomitant]
     Dosage: 40MG PER DAY
     Route: 042
     Dates: start: 20081113, end: 20081208
  7. VEPESID [Suspect]
     Indication: STEM CELL TRANSPLANT
     Dosage: 200MGM2 PER DAY
     Route: 042
     Dates: start: 20081110, end: 20081113

REACTIONS (6)
  - C-REACTIVE PROTEIN INCREASED [None]
  - BLOOD CREATININE INCREASED [None]
  - RENAL DISORDER [None]
  - PYREXIA [None]
  - VOMITING [None]
  - MUCOSAL INFLAMMATION [None]
